FAERS Safety Report 5322236-8 (Version None)
Quarter: 2007Q2

REPORT INFORMATION
  Report Type: 
  Country: None (occurrence: None)
  Receive Date: 20070223
  Receipt Date: 20061201
  Transmission Date: 20071010
  Serious: No
  Sender: FDA-Public Use
  Company Number: 2006SP007512

PATIENT

DRUGS (2)
  1. NOXAFIL [Suspect]
     Indication: DRUG USE FOR UNKNOWN INDICATION
  2. BUSULFAN [Suspect]
     Indication: DRUG USE FOR UNKNOWN INDICATION

REACTIONS (2)
  - DRUG INTERACTION [None]
  - DRUG LEVEL INCREASED [None]
